FAERS Safety Report 6495847-4 (Version None)
Quarter: 2009Q4

REPORT INFORMATION
  Report Type: 
  Country: None (occurrence: None)
  Receive Date: 20091214
  Receipt Date: 20090909
  Transmission Date: 20100525
  Serious: No
  Sender: FDA-Public Use
  Company Number: US-BRISTOL-MYERS SQUIBB COMPANY-14748016

PATIENT
  Age: 44 Year
  Sex: Male

DRUGS (2)
  1. ABILIFY [Suspect]
     Indication: BIPOLAR DISORDER
     Dosage: DECREASED TO 5MG AND STOPPED;STARTED 1 WEEK AGO.
     Route: 048
     Dates: start: 20090805
  2. CYMBALTA [Suspect]
     Dosage: 30MG AT NIGHT AND 60MG AT MORNING

REACTIONS (4)
  - COUGH [None]
  - RESTLESS LEGS SYNDROME [None]
  - SALIVARY HYPERSECRETION [None]
  - VISION BLURRED [None]
